FAERS Safety Report 11139597 (Version 2)
Quarter: 2015Q2

REPORT INFORMATION
  Report Type: Spontaneous
  Country: IT (occurrence: IT)
  Receive Date: 20150527
  Receipt Date: 20150611
  Transmission Date: 20150821
  Serious: Yes (Life-Threatening, Hospitalization)
  Sender: FDA-Public Use
  Company Number: IT-ELI_LILLY_AND_COMPANY-IT201505008372

PATIENT
  Sex: Female

DRUGS (8)
  1. SAMYR                              /00882301/ [Concomitant]
     Active Substance: METHIONINE
     Indication: DEPRESSION
     Dosage: UNK, UNKNOWN
     Route: 065
  2. LOBIVON [Suspect]
     Active Substance: NEBIVOLOL HYDROCHLORIDE
     Indication: ESSENTIAL HYPERTENSION
     Dosage: 70 MG, SINGLE
     Route: 048
     Dates: start: 20150512, end: 20150512
  3. XANAX [Concomitant]
     Active Substance: ALPRAZOLAM
     Indication: ANXIETY
     Dosage: UNK, UNKNOWN
     Route: 048
  4. PROZAC [Suspect]
     Active Substance: FLUOXETINE HYDROCHLORIDE
     Indication: DEPRESSION
     Dosage: 280 MG, SINGLE
     Route: 048
     Dates: start: 20150512, end: 20150512
  5. LAMICTAL [Suspect]
     Active Substance: LAMOTRIGINE
     Indication: EPILEPSY
     Dosage: 4200 MG, SINGLE
     Route: 048
     Dates: start: 20150512, end: 20150512
  6. SURMONTIL [Suspect]
     Active Substance: TRIMIPRAMINE MALEATE
     Indication: DEPRESSION
     Dosage: 625 MG, SINGLE
     Route: 048
     Dates: start: 20150512, end: 20150512
  7. NORITREN [Suspect]
     Active Substance: NORTRIPTYLINE HYDROCHLORIDE
     Indication: DEPRESSION
     Dosage: 750 MG, SINGLE
     Route: 048
     Dates: start: 20150512, end: 20150512
  8. TORVAST [Suspect]
     Active Substance: ATORVASTATIN
     Indication: HYPERCHOLESTEROLAEMIA
     Dosage: 300 MG, SINGLE
     Route: 048
     Dates: start: 20150512, end: 20150512

REACTIONS (5)
  - Suicide attempt [Unknown]
  - Traumatic coma [Recovering/Resolving]
  - Miosis [Recovering/Resolving]
  - Overdose [Unknown]
  - Hypotension [Recovering/Resolving]
